FAERS Safety Report 5983284-8 (Version None)
Quarter: 2008Q4

REPORT INFORMATION
  Report Type: 
  Country: None (occurrence: None)
  Receive Date: 20081208
  Receipt Date: 20080416
  Transmission Date: 20090506
  Serious: No
  Sender: FDA-Public Use
  Company Number: US-BAYER-200811722BCC

PATIENT
  Age: 83 Year
  Sex: Female
  Weight: 72 kg

DRUGS (2)
  1. ALEVE [Suspect]
     Indication: BACK PAIN
     Dosage: TOTAL DAILY DOSE: 440 MG  UNIT DOSE: 220 MG
     Route: 048
     Dates: start: 20080412, end: 20080415
  2. ASCORBIC ACID [Concomitant]

REACTIONS (1)
  - RASH [None]
